FAERS Safety Report 19578632 (Version 1)
Quarter: 2021Q3

REPORT INFORMATION
  Report Type: Spontaneous
  Country: DE (occurrence: DE)
  Receive Date: 20210719
  Receipt Date: 20210719
  Transmission Date: 20211014
  Serious: Yes (Other)
  Sender: FDA-Public Use
  Company Number: DE-UCBSA-2021033756

PATIENT
  Age: 32 Year
  Sex: Female
  Weight: 65 kg

DRUGS (5)
  1. LORATADINE. [Concomitant]
     Active Substance: LORATADINE
     Indication: PRODUCT USED FOR UNKNOWN INDICATION
  2. DERMATOP [Concomitant]
     Active Substance: PREDNICARBATE
     Indication: PRODUCT USED FOR UNKNOWN INDICATION
     Dosage: 2.5% OINTMENT, FOAM CONTAINING BETAMETHASONE, OLIVE OIL CAP
  3. CIMZIA [Suspect]
     Active Substance: CERTOLIZUMAB PEGOL
     Indication: PSORIASIS
     Dosage: 400 MILLIGRAM, EV 2 WEEKS(QOW)
     Route: 058
     Dates: start: 2018, end: 2018
  4. CIMZIA [Suspect]
     Active Substance: CERTOLIZUMAB PEGOL
     Dosage: 200 MILLIGRAM, EV 2 WEEKS(QOW)
     Route: 058
     Dates: start: 2018
  5. CIMZIA [Suspect]
     Active Substance: CERTOLIZUMAB PEGOL
     Dosage: 400 MILLIGRAM, EV 2 WEEKS(QOW)
     Route: 058
     Dates: start: 201809

REACTIONS (3)
  - Psoriasis [Recovered/Resolved]
  - Off label use [Unknown]
  - Maternal exposure during pregnancy [Unknown]

NARRATIVE: CASE EVENT DATE: 2018
